FAERS Safety Report 7588930-3 (Version None)
Quarter: 2011Q3

REPORT INFORMATION
  Report Type: 
  Country: None (occurrence: None)
  Receive Date: 20110705
  Receipt Date: 20110620
  Transmission Date: 20111222
  Serious: Yes (Hospitalization)
  Sender: FDA-Public Use
  Company Number: CA-JNJFOC-20110610115

PATIENT
  Sex: Female
  Weight: 56.7 kg

DRUGS (27)
  1. OMEGA 3-6-9 [Concomitant]
  2. ASCORBIC ACID [Concomitant]
  3. ASCORBIC ACID [Concomitant]
  4. VITAMIN D [Concomitant]
  5. METADOL [Concomitant]
  6. REMICADE [Suspect]
     Indication: RHEUMATOID ARTHRITIS
     Route: 042
     Dates: start: 20051101
  7. PREDNISOLONE [Concomitant]
     Dosage: BOTH EYES
     Dates: start: 20040101
  8. FOSAMAX [Concomitant]
  9. FERROUS GLUCONATE [Concomitant]
  10. PREDNISONE [Concomitant]
  11. REMICADE [Suspect]
     Route: 042
     Dates: start: 20090901
  12. METHOTREXATE [Concomitant]
  13. TOCOPHEROL CONCENTRATE CAP [Concomitant]
  14. HYDROMORPHONE HCL [Concomitant]
     Dosage: 16-24 MG HOURLY AS NEEDED
  15. DOCUSATE SODIUM [Concomitant]
  16. BACTROBAN [Concomitant]
     Dates: start: 20050201
  17. CYCLOCORT [Concomitant]
     Dates: start: 20050201
  18. COSOPT [Concomitant]
     Dosage: 2%-0.5% AS NEEDED FOR INCREASED PRESSURE
     Dates: start: 20080101
  19. GABAPENTIN [Concomitant]
  20. AMCINONIDE [Concomitant]
     Dosage: 2-3 TIMES DAILY
     Dates: start: 20070919
  21. DILANTIN [Concomitant]
  22. CALCIUM CARBONATE [Concomitant]
  23. FOLIC ACID [Concomitant]
  24. SENNOSIDE [Concomitant]
  25. PREDNISOLONE [Concomitant]
     Dosage: RIGHT EYE
     Dates: start: 20020301
  26. NAPROSYN [Concomitant]
  27. OMEPRAZOLE [Concomitant]

REACTIONS (1)
  - FOOD POISONING [None]
